FAERS Safety Report 16612061 (Version 2)
Quarter: 2021Q3

REPORT INFORMATION
  Report Type: Spontaneous
  Country: US (occurrence: US)
  Receive Date: 20190722
  Receipt Date: 20210720
  Transmission Date: 20211014
  Serious: Yes (Other)
  Sender: FDA-Public Use
  Company Number: US-ROCHE-2297773

PATIENT
  Age: 72 Year
  Sex: Male
  Weight: 89.44 kg

DRUGS (5)
  1. TECENTRIQ [Suspect]
     Active Substance: ATEZOLIZUMAB
     Indication: HEPATIC CANCER
  2. ACETAMINOPHEN. [Concomitant]
     Active Substance: ACETAMINOPHEN
  3. AVASTIN [Suspect]
     Active Substance: BEVACIZUMAB
     Indication: HEPATIC CANCER
  4. TECENTRIQ [Suspect]
     Active Substance: ATEZOLIZUMAB
     Indication: HEPATOCELLULAR CARCINOMA
     Dosage: LAST INFUSION WERE 9 WEEKS AGO AS OF 10/APR/2019
     Route: 041
     Dates: start: 201811, end: 20190206
  5. AVASTIN [Suspect]
     Active Substance: BEVACIZUMAB
     Indication: HEPATOCELLULAR CARCINOMA
     Dosage: LAST INFUSION WERE 9 WEEKS AGO AS OF 10/APR/2019
     Route: 042
     Dates: start: 201811, end: 20190206

REACTIONS (11)
  - Myalgia [Not Recovered/Not Resolved]
  - Pain [Recovered/Resolved]
  - Intentional product use issue [Unknown]
  - Gait inability [Recovered/Resolved]
  - Joint swelling [Recovered/Resolved]
  - Rotator cuff syndrome [Not Recovered/Not Resolved]
  - Off label use [Unknown]
  - Arthralgia [Not Recovered/Not Resolved]
  - Pain [Not Recovered/Not Resolved]
  - Blood thyroid stimulating hormone increased [Unknown]
  - Anaphylactic reaction [Recovered/Resolved]

NARRATIVE: CASE EVENT DATE: 201901
